FAERS Safety Report 7626085-7 (Version None)
Quarter: 2011Q3

REPORT INFORMATION
  Report Type: 
  Country: None (occurrence: None)
  Receive Date: 20110721
  Receipt Date: 20110719
  Transmission Date: 20111222
  Serious: Yes (Death, Life-Threatening, Hospitalization)
  Sender: FDA-Public Use
  Company Number: DE-BAYER-200818265GPV

PATIENT
  Age: 49 Year
  Sex: Female
  Weight: 65 kg

DRUGS (17)
  1. PEG-INTRON [Suspect]
     Indication: METASTATIC MALIGNANT MELANOMA
     Dosage: DAILY DOSE 195 ?G
     Route: 058
     Dates: start: 20080507, end: 20080507
  2. RIOPAN [Concomitant]
     Indication: PRODUCT USED FOR UNKNOWN INDICATION
     Dosage: UNK UNK, UNK
     Route: 065
     Dates: start: 20080430
  3. SORAFENIB (RAF KINASE INHIBITOR) [Suspect]
     Indication: METASTATIC MALIGNANT MELANOMA
     Dosage: 400 MG, BID
     Route: 048
     Dates: start: 20080430, end: 20080507
  4. MANNITOL [Concomitant]
     Indication: PRODUCT USED FOR UNKNOWN INDICATION
     Dosage: 200 ML, TID
     Route: 065
  5. LASIX [Concomitant]
     Indication: PRODUCT USED FOR UNKNOWN INDICATION
     Dosage: DAILY DOSE 20 ML
     Route: 065
  6. SORAFENIB (RAF KINASE INHIBITOR) [Suspect]
     Dosage: 400 MG, QD
     Route: 048
     Dates: start: 20080508, end: 20080508
  7. NEXIUM [Concomitant]
     Indication: PRODUCT USED FOR UNKNOWN INDICATION
     Dosage: 40 MG, BID
     Route: 042
     Dates: start: 20080509, end: 20080509
  8. BI53 [Concomitant]
     Indication: PRODUCT USED FOR UNKNOWN INDICATION
     Dosage: DAILY DOSE 80 ML
     Route: 065
  9. PEG-INTRON [Suspect]
     Dosage: DAILY DOSE 201 ?G
     Route: 058
     Dates: start: 20080430, end: 20080430
  10. MCP [Concomitant]
     Indication: PRODUCT USED FOR UNKNOWN INDICATION
     Dosage: 10 MG, BID
     Route: 065
     Dates: start: 20080509, end: 20080509
  11. PROPOFOL [Concomitant]
     Indication: PRODUCT USED FOR UNKNOWN INDICATION
     Dosage: DAILY DOSE 10 ML
     Route: 065
  12. ACETAMINOPHEN [Concomitant]
     Indication: PRODUCT USED FOR UNKNOWN INDICATION
     Dosage: UNK UNK, UNK
     Route: 065
     Dates: start: 20080430, end: 20080501
  13. IRENAT [Concomitant]
     Indication: HYPERTHYROIDISM
     Dosage: UNK UNK, UNK
     Route: 065
     Dates: start: 20080411, end: 20080421
  14. KONAKION [Concomitant]
     Indication: PRODUCT USED FOR UNKNOWN INDICATION
     Dosage: UNK UNK, UNK
     Route: 042
     Dates: start: 20080509, end: 20080509
  15. DIMENHYDRINATE [Concomitant]
     Indication: PRODUCT USED FOR UNKNOWN INDICATION
     Dosage: UNK UNK, BID
     Route: 065
     Dates: start: 20080509, end: 20080509
  16. FACTOR IX NOS [Concomitant]
     Indication: PRODUCT USED FOR UNKNOWN INDICATION
     Dosage: 1000 IU, BID
     Route: 042
     Dates: start: 20080509, end: 20080509
  17. ACETAMINOPHEN [Concomitant]
     Route: 065
     Dates: start: 20080507

REACTIONS (6)
  - COAGULOPATHY [None]
  - SUBDURAL HAEMORRHAGE [None]
  - GINGIVAL BLEEDING [None]
  - BLOOD URINE PRESENT [None]
  - BRAIN OEDEMA [None]
  - THROMBOCYTOPENIA [None]
